FAERS Safety Report 8759768 (Version 3)
Quarter: 2013Q4

REPORT INFORMATION
  Report Type: Spontaneous
  Country: JP (occurrence: JP)
  Receive Date: 20120829
  Receipt Date: 20131028
  Transmission Date: 20140711
  Serious: Yes (Death, Hospitalization, Other)
  Sender: FDA-Public Use
  Company Number: JP-ROCHE-1097937

PATIENT
  Age: 73 Year
  Sex: Female
  Weight: 64 kg

DRUGS (9)
  1. XELODA [Suspect]
     Indication: COLON CANCER METASTATIC
     Dosage: IT IS ADMINISTER/ONE WEEKLY HOLIDAY MEDICINE FOR TWO WEEKS.
     Route: 048
     Dates: start: 20120706, end: 20120717
  2. PROMAC (JAPAN) [Concomitant]
     Indication: DECREASED APPETITE
     Route: 048
  3. PROTECADIN [Concomitant]
     Indication: GASTRIC ULCER
     Route: 048
  4. HYPEN [Concomitant]
     Indication: ARTHRALGIA
     Route: 048
  5. SODIUM PICOSULFATE [Concomitant]
     Indication: CONSTIPATION
     Route: 048
  6. MAGLAX [Concomitant]
     Indication: CONSTIPATION
     Route: 048
  7. HUMULIN R [Concomitant]
     Indication: DIABETES MELLITUS
     Dosage: DOSAGE IS UNCERTAIN ACCORDING TO THE BLOOD SUGAR.
     Route: 058
  8. PYDOXAL [Concomitant]
     Indication: PROPHYLAXIS
     Route: 048
     Dates: start: 20120706, end: 20120717
  9. HIRUDOID (JAPAN) [Concomitant]
     Indication: PROPHYLAXIS
     Dosage: DOSAGE IS UNCERTAIN. ?SEVERAL-TIME/DAY
     Route: 003
     Dates: start: 20120706

REACTIONS (19)
  - Palmar-plantar erythrodysaesthesia syndrome [Unknown]
  - Multi-organ failure [Fatal]
  - Diarrhoea [Unknown]
  - Vomiting [Unknown]
  - Dehydration [Unknown]
  - Stomatitis [Recovering/Resolving]
  - Neutrophil count decreased [Recovered/Resolved]
  - Hepatic function abnormal [Unknown]
  - Disseminated intravascular coagulation [Unknown]
  - White blood cell count decreased [Recovered/Resolved]
  - Platelet count decreased [Not Recovered/Not Resolved]
  - Nausea [Not Recovered/Not Resolved]
  - Decreased appetite [Not Recovered/Not Resolved]
  - Hyperbilirubinaemia [Not Recovered/Not Resolved]
  - Pyrexia [Unknown]
  - Mucosal inflammation [Unknown]
  - Blood pressure decreased [Unknown]
  - Depressed level of consciousness [Recovering/Resolving]
  - Bone marrow failure [Unknown]
